FAERS Safety Report 11529072 (Version 1)
Quarter: 2015Q3

REPORT INFORMATION
  Report Type: Spontaneous
  Country: US (occurrence: US)
  Receive Date: 20150921
  Receipt Date: 20150921
  Transmission Date: 20151125
  Serious: No
  Sender: FDA-Public Use
  Company Number: US-TEVA-593662ACC

PATIENT
  Age: 27 Year
  Sex: Female
  Weight: 72.64 kg

DRUGS (4)
  1. OMEPRAZOLE. [Concomitant]
     Active Substance: OMEPRAZOLE
     Indication: GASTROOESOPHAGEAL REFLUX DISEASE
  2. PLAN B ONE-STEP [Suspect]
     Active Substance: LEVONORGESTREL
     Indication: POST COITAL CONTRACEPTION
     Dates: start: 20150901, end: 20150901
  3. MOTRIN [Concomitant]
     Active Substance: IBUPROFEN
     Indication: HEADACHE
  4. CLARITIN [Concomitant]
     Active Substance: LORATADINE
     Indication: NASOPHARYNGITIS

REACTIONS (5)
  - Dizziness [Recovered/Resolved]
  - Headache [Not Recovered/Not Resolved]
  - Pelvic pain [Not Recovered/Not Resolved]
  - Nipple pain [Not Recovered/Not Resolved]
  - Nausea [Not Recovered/Not Resolved]

NARRATIVE: CASE EVENT DATE: 20150903
